FAERS Safety Report 24712624 (Version 1)
Quarter: 2024Q4

REPORT INFORMATION
  Report Type: Spontaneous
  Country: CN (occurrence: CN)
  Receive Date: 20241209
  Receipt Date: 20241209
  Transmission Date: 20250115
  Serious: Yes (Life-Threatening, Hospitalization)
  Sender: PFIZER
  Company Number: CN-PFIZER INC-PV202400158186

PATIENT
  Age: 51 Year
  Sex: Male
  Weight: 69 kg

DRUGS (6)
  1. CYTARABINE [Suspect]
     Active Substance: CYTARABINE
     Indication: Chronic myeloid leukaemia
     Dosage: 50 MG, 1X/DAY
     Route: 037
     Dates: start: 20241016, end: 20241016
  2. CYTARABINE [Suspect]
     Active Substance: CYTARABINE
     Dosage: 180 MG, 1X/DAY
     Route: 041
     Dates: start: 20241016, end: 20241023
  3. METHOTREXATE [Suspect]
     Active Substance: METHOTREXATE
     Indication: Chronic myeloid leukaemia
     Dosage: 10 MG, 1X/DAY
     Route: 037
     Dates: start: 20241016, end: 20241016
  4. IDARUBICIN HYDROCHLORIDE [Suspect]
     Active Substance: IDARUBICIN HYDROCHLORIDE
     Indication: Chronic myeloid leukaemia
     Dosage: 20 MG, 1X/DAY
     Route: 042
     Dates: start: 20241017, end: 20241018
  5. IDARUBICIN HYDROCHLORIDE [Suspect]
     Active Substance: IDARUBICIN HYDROCHLORIDE
     Dosage: 10 MG, 1X/DAY
     Route: 042
     Dates: start: 20241019, end: 20241019
  6. DEXAMETHASONE [Suspect]
     Active Substance: DEXAMETHASONE
     Indication: Chronic myeloid leukaemia
     Dosage: 5 MG, 1X/DAY
     Route: 037
     Dates: start: 20241016, end: 20241016

REACTIONS (5)
  - Platelet count decreased [Unknown]
  - Neutrophil count decreased [Unknown]
  - Anaemia [Unknown]
  - Blood bilirubin increased [Unknown]
  - White blood cell count decreased [Unknown]

NARRATIVE: CASE EVENT DATE: 20241028
